FAERS Safety Report 24787126 (Version 2)
Quarter: 2025Q1

REPORT INFORMATION
  Report Type: Report from Study
  Country: US (occurrence: US)
  Receive Date: 20241230
  Receipt Date: 20250115
  Transmission Date: 20250408
  Serious: Yes (Other)
  Sender: INSMED
  Company Number: US-INSMED, INC.-2024-05177-US

PATIENT
  Sex: Female

DRUGS (16)
  1. ARIKAYCE [Suspect]
     Active Substance: AMIKACIN
     Indication: Mycobacterium avium complex infection
     Dosage: UNK, TIW
     Route: 055
     Dates: start: 2024, end: 2024
  2. ARIKAYCE [Suspect]
     Active Substance: AMIKACIN
     Dosage: UNK UNK, QOD
     Route: 055
     Dates: start: 2024, end: 20240709
  3. ARIKAYCE [Suspect]
     Active Substance: AMIKACIN
     Dosage: UNK UNK, WEEKLY
     Route: 055
     Dates: start: 20240731, end: 20240824
  4. ARIKAYCE [Suspect]
     Active Substance: AMIKACIN
     Dosage: UNK, QOD
     Route: 055
     Dates: start: 20240914
  5. AZITHROMYCIN [Suspect]
     Active Substance: AZITHROMYCIN
     Indication: Mycobacterium abscessus infection
     Dosage: 500 MILLIGRAM, QD
     Route: 048
     Dates: start: 20240415, end: 2024
  6. AZITHROMYCIN [Suspect]
     Active Substance: AZITHROMYCIN
     Dosage: 500 MILLIGRAM, QD
     Route: 048
     Dates: start: 20240729
  7. ETHAMBUTOL [Suspect]
     Active Substance: ETHAMBUTOL HYDROCHLORIDE
     Indication: Mycobacterium abscessus infection
     Dosage: 800 MILLIGRAM, QD
     Route: 048
     Dates: start: 20240415, end: 2024
  8. ETHAMBUTOL [Suspect]
     Active Substance: ETHAMBUTOL HYDROCHLORIDE
     Dosage: 800 MILLIGRAM, QD
     Route: 048
     Dates: start: 20240729
  9. AMIKACIN [Concomitant]
     Active Substance: AMIKACIN
     Indication: Mycobacterium abscessus infection
     Route: 065
     Dates: start: 2023, end: 20240731
  10. CLOFAZIMINE [Concomitant]
     Active Substance: CLOFAZIMINE
     Indication: Mycobacterium abscessus infection
     Dosage: UNK, UNK
     Route: 048
     Dates: start: 2024, end: 202409
  11. LEVOTHYROXINE [Concomitant]
     Active Substance: LEVOTHYROXINE
     Indication: Hypothyroidism
     Dosage: 88 MILLIGRAM, QD
     Route: 048
  12. ALBUTEROL [Concomitant]
     Active Substance: ALBUTEROL
     Indication: Product used for unknown indication
     Route: 055
  13. BUDESONIDE [Concomitant]
     Active Substance: BUDESONIDE
     Indication: Dyspnoea
     Dosage: 180 MICROGRAM, 2 PUFFS BID
     Route: 055
  14. ALPRAZOLAM [Concomitant]
     Active Substance: ALPRAZOLAM
     Indication: Anxiety
     Route: 065
  15. VITAMIN D3 [Concomitant]
     Active Substance: CHOLECALCIFEROL
     Indication: Vitamin supplementation
     Route: 065
  16. SODIUM CHLORIDE [Concomitant]
     Active Substance: SODIUM CHLORIDE
     Indication: Productive cough
     Route: 055

REACTIONS (5)
  - Mycobacterium avium complex infection [Unknown]
  - Deafness [Recovered/Resolved]
  - Fatigue [Unknown]
  - Hypoacusis [Recovered/Resolved]
  - Off label use [Unknown]

NARRATIVE: CASE EVENT DATE: 20240101
